FAERS Safety Report 7584432-9 (Version None)
Quarter: 2011Q2

REPORT INFORMATION
  Report Type: 
  Country: None (occurrence: None)
  Receive Date: 20110630
  Receipt Date: 20110622
  Transmission Date: 20111010
  Serious: Yes (Other)
  Sender: FDA-Public Use
  Company Number: GB-PFIZER INC-2011138155

PATIENT
  Age: 59 Year
  Sex: Female

DRUGS (5)
  1. GEMTUZUMAB OZOGAMICIN [Suspect]
     Dosage: UNK
     Dates: start: 20110112, end: 20110122
  2. DAUNORUBICIN HCL [Suspect]
     Dosage: UNK
     Dates: start: 20110112, end: 20110122
  3. CYTARABINE [Suspect]
     Dosage: UNK
     Dates: start: 20110112, end: 20110122
  4. CHLORHEXIDINE [Concomitant]
     Dosage: 10 ML, UNK
     Dates: start: 20110112
  5. DIFFLAM [Concomitant]
     Dosage: 10 ML, UNK
     Dates: start: 20110112

REACTIONS (1)
  - EXFOLIATIVE RASH [None]
